FAERS Safety Report 5527661-8 (Version None)
Quarter: 2007Q4

REPORT INFORMATION
  Report Type: 
  Country: None (occurrence: None)
  Receive Date: 20071123
  Receipt Date: 20071109
  Transmission Date: 20080405
  Serious: Yes (Other)
  Sender: FDA-Public Use
  Company Number: M7001-02876-CLI-DE

PATIENT
  Age: 64 Year
  Sex: Female
  Weight: 71 kg

DRUGS (1)
  1. TARGRETIN [Suspect]
     Indication: MYCOSIS FUNGOIDES
     Dosage: 150 MG/M2, 1 IN 1 D, TOPICAL
     Route: 061
     Dates: start: 20071004, end: 20071106

REACTIONS (1)
  - HYPERTRIGLYCERIDAEMIA [None]
